FAERS Safety Report 25721485 (Version 1)
Quarter: 2025Q3

REPORT INFORMATION
  Report Type: Spontaneous
  Country: EU (occurrence: EU)
  Receive Date: 20250825
  Receipt Date: 20250825
  Transmission Date: 20251020
  Serious: Yes (Other)
  Sender: MYLAN
  Company Number: None

PATIENT
  Age: 36 Year
  Sex: Female

DRUGS (8)
  1. ROPIVACAINE [Suspect]
     Active Substance: ROPIVACAINE
     Indication: Anaesthesia
     Dates: start: 20250605, end: 20250605
  2. ROPIVACAINE [Suspect]
     Active Substance: ROPIVACAINE
     Route: 008
     Dates: start: 20250605, end: 20250605
  3. ROPIVACAINE [Suspect]
     Active Substance: ROPIVACAINE
     Route: 008
     Dates: start: 20250605, end: 20250605
  4. ROPIVACAINE [Suspect]
     Active Substance: ROPIVACAINE
     Dates: start: 20250605, end: 20250605
  5. SUFENTANIL [Suspect]
     Active Substance: SUFENTANIL
     Indication: Anaesthesia
  6. SUFENTANIL [Suspect]
     Active Substance: SUFENTANIL
     Route: 008
  7. SUFENTANIL [Suspect]
     Active Substance: SUFENTANIL
     Route: 008
  8. SUFENTANIL [Suspect]
     Active Substance: SUFENTANIL

REACTIONS (1)
  - Motor dysfunction [Not Recovered/Not Resolved]

NARRATIVE: CASE EVENT DATE: 20250606
